FAERS Safety Report 6744594-X (Version None)
Quarter: 2010Q2

REPORT INFORMATION
  Report Type: 
  Country: None (occurrence: None)
  Receive Date: 20100527
  Receipt Date: 20100520
  Transmission Date: 20101027
  Serious: Yes (Hospitalization)
  Sender: FDA-Public Use
  Company Number: PHHO2010US05757

PATIENT
  Sex: Female
  Weight: 82.948 kg

DRUGS (6)
  1. AFINITOR [Suspect]
     Indication: BREAST CANCER
     Dosage: 30 MG PO WEEKLY FOR 9 WEEKS
     Route: 048
     Dates: start: 20100304, end: 20100403
  2. AFINITOR [Suspect]
     Dosage: 30 MG PO WEEKLY FOR 9 WEEKS
     Route: 048
     Dates: start: 20100414
  3. PACLITAXEL COMP-PAC+ [Suspect]
     Indication: BREAST CANCER
     Dosage: 150 MG
     Dates: start: 20100304, end: 20100403
  4. PACLITAXEL COMP-PAC+ [Suspect]
     Dosage: 150 MG
     Dates: start: 20100414
  5. CISPLATIN COMP-CIS+ [Suspect]
     Indication: BREAST CANCER
     Dosage: UNK
     Dates: start: 20100304, end: 20100403
  6. CISPLATIN COMP-CIS+ [Suspect]
     Dosage: UNK
     Dates: start: 20100414

REACTIONS (10)
  - ASTHENIA [None]
  - DIARRHOEA [None]
  - DIASTOLIC DYSFUNCTION [None]
  - ELECTROCARDIOGRAM Q WAVE ABNORMAL [None]
  - ELECTROCARDIOGRAM T WAVE ABNORMAL [None]
  - FATIGUE [None]
  - HYPOPHAGIA [None]
  - HYPOVOLAEMIA [None]
  - NAUSEA [None]
  - SYNCOPE [None]
